FAERS Safety Report 5845354-4 (Version None)
Quarter: 2008Q3

REPORT INFORMATION
  Report Type: 
  Country: None (occurrence: None)
  Receive Date: 20080814
  Receipt Date: 20080805
  Transmission Date: 20090109
  Serious: Yes (Other)
  Sender: FDA-Public Use
  Company Number: ZA-JNJFOC-20080801097

PATIENT
  Sex: Female

DRUGS (4)
  1. TOPAMAX [Suspect]
  2. TOPAMAX [Suspect]
  3. TOPAMAX [Suspect]
     Indication: TEMPORAL LOBE EPILEPSY
  4. LAMICTAL [Concomitant]
     Indication: TEMPORAL LOBE EPILEPSY

REACTIONS (3)
  - EYE PAIN [None]
  - OCULAR HYPERAEMIA [None]
  - VISUAL IMPAIRMENT [None]
